FAERS Safety Report 7691306-1 (Version None)
Quarter: 2011Q3

REPORT INFORMATION
  Report Type: 
  Country: None (occurrence: None)
  Receive Date: 20110818
  Receipt Date: 20110805
  Transmission Date: 20111222
  Serious: Yes (Other)
  Sender: FDA-Public Use
  Company Number: US-JNJFOC-20110806704

PATIENT
  Sex: Male

DRUGS (3)
  1. ZOLOFT [Concomitant]
     Indication: DEPRESSION
     Route: 048
  2. INVEGA [Suspect]
     Indication: AGGRESSION
     Route: 048
     Dates: start: 20090101, end: 20101001
  3. XANAX [Concomitant]
     Indication: ANXIETY
     Route: 048

REACTIONS (7)
  - SOCIAL AVOIDANT BEHAVIOUR [None]
  - APHASIA [None]
  - READING DISORDER [None]
  - FEELING ABNORMAL [None]
  - ADVERSE EVENT [None]
  - GAIT DISTURBANCE [None]
  - FEAR [None]
